FAERS Safety Report 6323391-3 (Version None)
Quarter: 2009Q3

REPORT INFORMATION
  Report Type: 
  Country: None (occurrence: None)
  Receive Date: 20090824
  Receipt Date: 20090402
  Transmission Date: 20100115
  Serious: No
  Sender: FDA-Public Use
  Company Number: US-ABBOTT-09P-163-0566489-00

PATIENT
  Sex: Male

DRUGS (14)
  1. NIASPAN [Suspect]
     Indication: LOW DENSITY LIPOPROTEIN INCREASED
     Dates: start: 20090319, end: 20090404
  2. NIASPAN [Suspect]
     Indication: HIGH DENSITY LIPOPROTEIN DECREASED
  3. DIOVAN [Concomitant]
     Indication: DRUG USE FOR UNKNOWN INDICATION
  4. ASCORBIC ACID [Concomitant]
     Indication: DRUG USE FOR UNKNOWN INDICATION
  5. MULTI-VITAMIN [Concomitant]
     Indication: DRUG USE FOR UNKNOWN INDICATION
  6. METFORMIN HCL [Concomitant]
     Indication: DRUG USE FOR UNKNOWN INDICATION
  7. ANTARA (MICRONIZED) [Concomitant]
     Indication: BLOOD CHOLESTEROL
  8. LOVASA [Concomitant]
     Indication: BLOOD CHOLESTEROL
  9. LEXAPRO [Concomitant]
     Indication: INSOMNIA
  10. VIRID [Concomitant]
     Indication: HIV INFECTION
  11. ENETRIEVA [Concomitant]
     Indication: DRUG USE FOR UNKNOWN INDICATION
  12. NORVIR [Concomitant]
     Indication: DRUG USE FOR UNKNOWN INDICATION
  13. LEXIVA [Concomitant]
     Indication: DRUG USE FOR UNKNOWN INDICATION
  14. OMEGA 3 ACID [Concomitant]
     Indication: DRUG USE FOR UNKNOWN INDICATION

REACTIONS (7)
  - BLOOD GLUCOSE INCREASED [None]
  - BLOOD PRESSURE INCREASED [None]
  - CHEST PAIN [None]
  - ERYTHEMA [None]
  - FATIGUE [None]
  - HYPERHIDROSIS [None]
  - NAUSEA [None]
